FAERS Safety Report 24845617 (Version 1)
Quarter: 2025Q1

REPORT INFORMATION
  Report Type: Spontaneous
  Country: US (occurrence: None)
  Receive Date: 20250115
  Receipt Date: 20250115
  Transmission Date: 20250408
  Serious: Yes (Other)
  Sender: FDA-CTU
  Company Number: None

PATIENT
  Sex: Female

DRUGS (5)
  1. PROLIA [Suspect]
     Active Substance: DENOSUMAB
     Indication: Senile osteoporosis
     Route: 058
     Dates: start: 20240430
  2. CALCIUM TAB 600MG [Concomitant]
  3. HUMIRA [Concomitant]
     Active Substance: ADALIMUMAB
  4. MULTIVITAMIN TAB ADULTS [Concomitant]
  5. TYLENOL TAB 500MG [Concomitant]

REACTIONS (2)
  - Therapy interrupted [None]
  - Surgery [None]
